FAERS Safety Report 4577397-5 (Version None)
Quarter: 2005Q1

REPORT INFORMATION
  Report Type: 
  Country: None (occurrence: None)
  Receive Date: 20050208
  Receipt Date: 20050126
  Transmission Date: 20050727
  Serious: Yes (Disabling)
  Sender: FDA-Public Use
  Company Number: S05-FRA-00433-01

PATIENT
  Sex: Male

DRUGS (2)
  1. SEROPRAM              (CITALOPRAM HYDROBROMIDE) [Suspect]
     Indication: ANXIETY
     Dosage: 20 MG QD PO
     Route: 048
  2. SEROPRAM              (CITALOPRAM HYDROBROMIDE) [Suspect]
     Indication: DEPRESSION
     Dosage: 20 MG QD PO
     Route: 048

REACTIONS (3)
  - CONDITION AGGRAVATED [None]
  - HALLUCINATION, AUDITORY [None]
  - TINNITUS [None]
